FAERS Safety Report 8849451 (Version 2)
Quarter: 2012Q4

REPORT INFORMATION
  Report Type: Report from Study
  Country: FR (occurrence: FR)
  Receive Date: 20121019
  Receipt Date: 20121207
  Transmission Date: 20130627
  Serious: Yes (Other)
  Sender: FDA-Public Use
  Company Number: FR-VERTEX PHARMACEUTICAL INC.-000000000000000866

PATIENT
  Age: 42 Year
  Sex: Female
  Weight: 45 kg

DRUGS (13)
  1. VX-950 (TELAPREVIR) [Suspect]
     Indication: HEPATITIS C
     Dosage: 750 mg, tid
     Route: 048
     Dates: start: 20111227, end: 20120321
  2. PEGASYS [Suspect]
     Indication: HEPATITIS C
     Dosage: 18 DF, qw
     Route: 065
     Dates: start: 20111130
  3. COPEGUS [Suspect]
     Indication: HEPATITIS C
     Dosage: 1000 mg, qd
     Route: 065
     Dates: start: 20111130, end: 20120111
  4. COPEGUS [Suspect]
     Dosage: 800 mg, qd
     Route: 065
     Dates: start: 20120111
  5. ISENTRESS [Concomitant]
     Indication: HIV INFECTION
     Dosage: Dosage Form: Unspecified
     Route: 065
     Dates: start: 20110615
  6. TRUVADA [Concomitant]
     Indication: HIV INFECTION
     Dosage: Dosage Form: Unspecified
     Route: 065
     Dates: start: 20110615
  7. SUBUTEX [Concomitant]
     Indication: DRUG DEPENDENCE
     Dosage: Dosage Form: Unspecified
     Route: 065
     Dates: start: 1998
  8. ALL OTHER PRODUCTS [Concomitant]
     Dosage: Dosage Form: Unspecified
     Route: 065
     Dates: start: 20120111
  9. PRIMPERAN [Concomitant]
     Indication: VOMITING
     Route: 065
     Dates: start: 20120111
  10. PRIMPERAN [Concomitant]
     Indication: NAUSEA
  11. NEORECORMON [Concomitant]
     Indication: ANAEMIA
     Route: 065
     Dates: start: 20120225
  12. BACTRIM [Concomitant]
     Indication: CD4 LYMPHOCYTES DECREASED
     Route: 065
     Dates: start: 20120321
  13. DEROXAT [Concomitant]
     Indication: DEPRESSION
     Route: 065
     Dates: start: 20120516

REACTIONS (1)
  - Leukopenia [Recovered/Resolved]
